FAERS Safety Report 9572309 (Version 1)
Quarter: 2013Q3

REPORT INFORMATION
  Report Type: Spontaneous
  Country: IT (occurrence: None)
  Receive Date: 20130927
  Receipt Date: 20130927
  Transmission Date: 20140515
  Serious: Yes (Other)
  Sender: FDA-Public Use
  Company Number: SP07051

PATIENT
  Age: 43 Year
  Sex: Female
  Weight: 75 kg

DRUGS (10)
  1. XIFAXAN [Suspect]
     Route: 048
  2. HALDOL [Suspect]
     Route: 048
  3. IMPROMEN [Suspect]
  4. KLACID [Suspect]
  5. OMEPRAZOLE [Suspect]
  6. ZYLORIC [Suspect]
  7. NOVALGINA [Suspect]
     Route: 048
  8. AMBROMUCIL [Concomitant]
  9. DISIPAL [Suspect]
  10. VALIUM [Suspect]
     Route: 048

REACTIONS (1)
  - Confusional state [None]
